FAERS Safety Report 20194862 (Version 1)
Quarter: 2021Q4

REPORT INFORMATION
  Report Type: Spontaneous
  Country: US (occurrence: US)
  Receive Date: 20211216
  Receipt Date: 20211216
  Transmission Date: 20220303
  Serious: Yes (Other)
  Sender: FDA-Public Use
  Company Number: US-FRESENIUS KABI-FK202114049

PATIENT
  Age: 22 Year
  Sex: Male

DRUGS (3)
  1. ETOPOSIDE [Suspect]
     Active Substance: ETOPOSIDE
     Indication: Testis cancer
     Dosage: 5-DAY COURSE OF BEP REGIMEN
     Route: 065
  2. BLEOMYCIN [Suspect]
     Active Substance: BLEOMYCIN SULFATE
     Indication: Testis cancer
     Dosage: 5-DAY COURSE OF BEP REGIMEN
     Route: 065
  3. CISPLATIN [Suspect]
     Active Substance: CISPLATIN
     Indication: Testis cancer
     Dosage: 5-DAY COURSE OF BEP REGIMEN
     Route: 065

REACTIONS (3)
  - Acute kidney injury [Unknown]
  - Neutropenia [Unknown]
  - Hypoxia [Unknown]
